FAERS Safety Report 18001704 (Version 1)
Quarter: 2020Q3

REPORT INFORMATION
  Report Type: Spontaneous
  Country: US (occurrence: US)
  Receive Date: 20200709
  Receipt Date: 20200709
  Transmission Date: 20201103
  Serious: Yes (Hospitalization, Other)
  Sender: FDA-Public Use
  Company Number: US-PFIZER INC-2020263003

PATIENT
  Sex: Female
  Weight: 1.79 kg

DRUGS (14)
  1. BLEOMYCIN SULFATE [Suspect]
     Active Substance: BLEOMYCIN SULFATE
     Indication: MALIGNANT MESENTERIC NEOPLASM
  2. BETAMETHASONE. [Suspect]
     Active Substance: BETAMETHASONE
     Indication: MALIGNANT MESENTERIC NEOPLASM
  3. CISPLATIN. [Suspect]
     Active Substance: CISPLATIN
     Indication: TERATOMA
     Dosage: UNK, CYCLIC (HER SECOND CYCLE BEGAN AT 33 WEEKS GA)
     Route: 064
  4. INDOMETHACIN. [Suspect]
     Active Substance: INDOMETHACIN
     Indication: MALIGNANT MESENTERIC NEOPLASM
     Dosage: 25 MG, 4X/DAY ,(EVERY SIX HOURS FOR 72 H POSTOPERATIVELY)
     Route: 064
  5. ETOPOSIDE. [Suspect]
     Active Substance: ETOPOSIDE
     Indication: CHEMOTHERAPY
     Dosage: UNK, CYCLIC (HER SECOND CYCLE BEGAN AT 33 WEEKS GA)
     Route: 064
  6. CISPLATIN. [Suspect]
     Active Substance: CISPLATIN
     Indication: CHEMOTHERAPY
     Dosage: 20 MG/M2, 1X/DAY, (MG/M2/DAY, 30 WKS GA)
     Route: 064
  7. ENOXAPARIN [Suspect]
     Active Substance: ENOXAPARIN
     Indication: THROMBOSIS PROPHYLAXIS
     Dosage: UNK (CONTINUED FOR FOUR WEEKS POSTOPERATIVELY)
     Route: 064
  8. BETAMETHASONE. [Suspect]
     Active Substance: BETAMETHASONE
     Indication: TERATOMA
     Dosage: UNK
     Route: 064
  9. CISPLATIN. [Suspect]
     Active Substance: CISPLATIN
     Indication: MALIGNANT MESENTERIC NEOPLASM
  10. ETOPOSIDE. [Suspect]
     Active Substance: ETOPOSIDE
     Indication: MALIGNANT MESENTERIC NEOPLASM
  11. BLEOMYCIN SULFATE [Suspect]
     Active Substance: BLEOMYCIN SULFATE
     Indication: TERATOMA
     Dosage: UNK, CYCLIC (20 IU/M^2)
     Route: 064
  12. BLEOMYCIN SULFATE [Suspect]
     Active Substance: BLEOMYCIN SULFATE
     Indication: CHEMOTHERAPY
     Dosage: UNK, CYCLIC (HER SECOND CYCLE BEGAN AT 33 WEEKS GA)
     Route: 064
  13. INDOMETHACIN. [Suspect]
     Active Substance: INDOMETHACIN
     Indication: TERATOMA
     Dosage: 50 MG (ONE HOUR PRIOR TO SURGERY)
     Route: 064
  14. ETOPOSIDE. [Suspect]
     Active Substance: ETOPOSIDE
     Indication: TERATOMA
     Dosage: 100 MG/M2, 1X/DAY
     Route: 064

REACTIONS (3)
  - Low birth weight baby [Recovered/Resolved]
  - Foetal growth abnormality [Recovered/Resolved]
  - Maternal exposure during pregnancy [Recovered/Resolved]
